FAERS Safety Report 20460118 (Version 1)
Quarter: 2022Q1

REPORT INFORMATION
  Report Type: Report from Study
  Country: US (occurrence: US)
  Receive Date: 20220211
  Receipt Date: 20220211
  Transmission Date: 20220423
  Serious: Yes (Hospitalization)
  Sender: FDA-Public Use
  Company Number: US-JAZZ-2021-US-007079

PATIENT
  Age: 15 Year
  Sex: Male
  Weight: 122.6 kg

DRUGS (6)
  1. ASPARAGINASE ERWINIA CHRYSANTHEMI [Suspect]
     Active Substance: ASPARAGINASE ERWINIA CHRYSANTHEMI
     Indication: Acute lymphocytic leukaemia
     Dosage: 60 MILLIGRAM, 3XWEEKLY PER 2W COURSE
     Route: 030
     Dates: start: 20210217, end: 20210301
  2. ASPARAGINASE ERWINIA CHRYSANTHEMI [Suspect]
     Active Substance: ASPARAGINASE ERWINIA CHRYSANTHEMI
     Dosage: 62 MILLIGRAM, 3XWEEKLY PER 2W COURSE
     Route: 030
     Dates: start: 20210405, end: 20210414
  3. TRESIBA [Concomitant]
     Active Substance: INSULIN DEGLUDEC
     Dosage: 30 UNITS, QD
     Route: 058
     Dates: start: 20210412
  4. HUMALOG [Concomitant]
     Active Substance: INSULIN LISPRO
     Dosage: 6 UNITS, ONCE
     Route: 058
     Dates: start: 20210412, end: 20210412
  5. HUMALOG [Concomitant]
     Active Substance: INSULIN LISPRO
     Dosage: 17 UNITS, ONCE
     Route: 058
     Dates: start: 20210414, end: 20210414
  6. ZOFRAN [Concomitant]
     Active Substance: ONDANSETRON HYDROCHLORIDE
     Dosage: 8 MILLIGRAM, ONCE BEFORE RC-P
     Dates: start: 20210409, end: 20210414

REACTIONS (4)
  - Pancreatitis [Recovered/Resolved]
  - Lipase increased [Recovered/Resolved]
  - Amylase increased [Recovered/Resolved]
  - Enterocolitis infectious [Recovered/Resolved]

NARRATIVE: CASE EVENT DATE: 20210415
